FAERS Safety Report 5633567-6 (Version None)
Quarter: 2008Q1

REPORT INFORMATION
  Report Type: 
  Country: None (occurrence: None)
  Receive Date: 20080221
  Receipt Date: 20080211
  Transmission Date: 20080703
  Serious: Yes (Hospitalization, Other)
  Sender: FDA-Public Use
  Company Number: US-PFIZER INC-2008012919

PATIENT
  Sex: Male
  Weight: 124.7 kg

DRUGS (1)
  1. BEXTRA [Suspect]
     Indication: ARTHROPATHY

REACTIONS (8)
  - ANAESTHETIC COMPLICATION [None]
  - ARTHROPATHY [None]
  - CARDIOVASCULAR DISORDER [None]
  - ERECTILE DYSFUNCTION [None]
  - GASTROINTESTINAL DISORDER [None]
  - LIMB INJURY [None]
  - PARALYSIS [None]
  - THROMBOSIS [None]
